FAERS Safety Report 20466655 (Version 2)
Quarter: 2022Q1

REPORT INFORMATION
  Report Type: Report from Study
  Country: JP (occurrence: JP)
  Receive Date: 20220213
  Receipt Date: 20220318
  Transmission Date: 20220424
  Serious: Yes (Death, Hospitalization, Other)
  Sender: FDA-Public Use
  Company Number: JP-NOVARTISPH-NVSJ2021JP018075

PATIENT
  Age: 64 Year
  Sex: Male

DRUGS (1)
  1. TABRECTA [Suspect]
     Active Substance: CAPMATINIB
     Indication: Non-small cell lung cancer stage IV
     Dosage: 800 MG
     Route: 048
     Dates: start: 20211014, end: 20211108

REACTIONS (3)
  - Non-small cell lung cancer [Fatal]
  - Pulmonary toxicity [Recovering/Resolving]
  - Renal impairment [Recovered/Resolved]

NARRATIVE: CASE EVENT DATE: 20211025
